FAERS Safety Report 21319295 (Version 2)
Quarter: 2022Q4

REPORT INFORMATION
  Report Type: Spontaneous
  Country: US (occurrence: US)
  Receive Date: 20220911
  Receipt Date: 20221003
  Transmission Date: 20230112
  Serious: No
  Sender: FDA-Public Use
  Company Number: US-SA-SAC20220902002014

PATIENT
  Sex: Female

DRUGS (1)
  1. DUPIXENT [Suspect]
     Active Substance: DUPILUMAB
     Indication: Dermatitis allergic
     Dosage: 200 MG, QOW
     Route: 058
     Dates: start: 20220726

REACTIONS (3)
  - Ocular hyperaemia [Unknown]
  - Eye pruritus [Unknown]
  - Conjunctivitis [Unknown]
